FAERS Safety Report 15111724 (Version 1)
Quarter: 2018Q3

REPORT INFORMATION
  Report Type: Spontaneous
  Country: US (occurrence: US)
  Receive Date: 20180705
  Receipt Date: 20180705
  Transmission Date: 20181010
  Serious: Yes (Death)
  Sender: FDA-Public Use
  Company Number: US-JNJFOC-20180705272

PATIENT
  Sex: Female
  Weight: 54 kg

DRUGS (6)
  1. IMBRUVICA [Suspect]
     Active Substance: IBRUTINIB
     Indication: PRODUCT USED FOR UNKNOWN INDICATION
     Route: 048
     Dates: start: 20180219
  2. XARELTO [Concomitant]
     Active Substance: RIVAROXABAN
  3. CARVEDILOL. [Concomitant]
     Active Substance: CARVEDILOL
  4. ACYCLOVIR. [Concomitant]
     Active Substance: ACYCLOVIR
  5. PROTONIX [Concomitant]
     Active Substance: PANTOPRAZOLE SODIUM
  6. DEXAMETHASONE. [Concomitant]
     Active Substance: DEXAMETHASONE

REACTIONS (1)
  - Death [Fatal]
